FAERS Safety Report 23037750 (Version 2)
Quarter: 2023Q4

REPORT INFORMATION
  Report Type: Report from Study
  Country: US (occurrence: US)
  Receive Date: 20231006
  Receipt Date: 20231208
  Transmission Date: 20240110
  Serious: Yes (Death)
  Sender: FDA-Public Use
  Company Number: US-002147023-NVSC2023US215038

PATIENT
  Age: 2 Year
  Sex: Male
  Weight: 12 kg

DRUGS (1)
  1. ZOLGENSMA [Suspect]
     Active Substance: ONASEMNOGENE ABEPARVOVEC-XIOI
     Indication: Spinal muscular atrophy
     Dosage: 1 DOSAGE FORM, ONCE/SINGLE (6 ML, ZOLGENSMA 5.5 ML VIAL X 1 AND 8.3 ML VIAL X 5)
     Route: 042
     Dates: start: 20200720, end: 20200720

REACTIONS (1)
  - Death [Fatal]

NARRATIVE: CASE EVENT DATE: 20220813
